FAERS Safety Report 21801369 (Version 1)
Quarter: 2022Q4

REPORT INFORMATION
  Report Type: Spontaneous
  Country: US (occurrence: None)
  Receive Date: 20221230
  Receipt Date: 20221230
  Transmission Date: 20230113
  Serious: No
  Sender: FDA-Public Use
  Company Number: 2022A384321

PATIENT
  Sex: Male
  Weight: 88.5 kg

DRUGS (1)
  1. SYMBICORT [Suspect]
     Active Substance: BUDESONIDE\FORMOTEROL FUMARATE DIHYDRATE
     Dosage: 80/4.5 MCG, 2 INHALATIONS ONCE DAILY
     Route: 055

REACTIONS (4)
  - Foreign body in mouth [Unknown]
  - Device use issue [Unknown]
  - Off label use [Unknown]
  - Device issue [Unknown]
